FAERS Safety Report 26141036 (Version 1)
Quarter: 2025Q4

REPORT INFORMATION
  Report Type: Spontaneous
  Country: JP (occurrence: JP)
  Receive Date: 20251210
  Receipt Date: 20251210
  Transmission Date: 20260118
  Serious: Yes (Other)
  Sender: EISAI
  Company Number: JP-Eisai-202511530_HAL-STS_P_1

PATIENT
  Age: 32 Year
  Sex: Male

DRUGS (5)
  1. ERIBULIN [Suspect]
     Active Substance: ERIBULIN
     Indication: Angiosarcoma
     Dosage: DOSE AND FREQUENCY UNKNOWN
  2. PACLITAXEL [Suspect]
     Active Substance: PACLITAXEL
     Indication: Angiosarcoma
     Dosage: DOSE AND FREQUENCY UNKNOWN
  3. PAZOPANIB HYDROCHLORIDE [Suspect]
     Active Substance: PAZOPANIB HYDROCHLORIDE
     Indication: Angiosarcoma
     Dosage: DOSE AND FREQUENCY  UNKNOWN
  4. TRABECTEDIN [Suspect]
     Active Substance: TRABECTEDIN
     Indication: Angiosarcoma
     Dosage: DOSE AND FREQUENCY UNKNOWN
  5. DOXORUBICIN HYDROCHLORIDE [Suspect]
     Active Substance: DOXORUBICIN HYDROCHLORIDE
     Indication: Angiosarcoma
     Dosage: DOSE AND FREQUENCY UNKNOWN

REACTIONS (2)
  - Right ventricular failure [Unknown]
  - Pericarditis [Unknown]
